FAERS Safety Report 6290776-3 (Version None)
Quarter: 2009Q3

REPORT INFORMATION
  Report Type: 
  Country: None (occurrence: None)
  Receive Date: 20090729
  Receipt Date: 20090729
  Transmission Date: 20100115
  Serious: Yes (Hospitalization)
  Sender: FDA-Public Use
  Company Number: None

PATIENT
  Age: 50 Year
  Sex: Female
  Weight: 79.4 kg

DRUGS (5)
  1. VELCADE [Suspect]
     Indication: HEAD AND NECK CANCER
     Dosage: 1.3MG/M2 2XWEEK IV
     Dates: start: 20090713
  2. CISPLATIN [Suspect]
     Indication: HEAD AND NECK CANCER
     Dosage: 30MG/M2 1XWEEK IV
     Route: 042
     Dates: start: 20090713
  3. HYDROCODONE [Concomitant]
  4. ERYTHROMYCIN OINTMENT [Concomitant]
  5. NEXIUM [Concomitant]

REACTIONS (1)
  - URINARY TRACT INFECTION [None]
